FAERS Safety Report 12743794 (Version 2)
Quarter: 2016Q3

REPORT INFORMATION
  Report Type: Spontaneous
  Country: GB (occurrence: GB)
  Receive Date: 20160914
  Receipt Date: 20160927
  Transmission Date: 20161109
  Serious: Yes (Hospitalization)
  Sender: FDA-Public Use
  Company Number: PHHY2016GB124320

PATIENT
  Age: 69 Year
  Sex: Male

DRUGS (1)
  1. AMLODIPINE BESYLATE SANDOZ [Suspect]
     Active Substance: AMLODIPINE BESYLATE
     Indication: HYPERTENSION
     Dosage: 5 MG, QD
     Route: 048

REACTIONS (4)
  - Body temperature increased [Unknown]
  - Generalised erythema [Unknown]
  - Swelling face [Unknown]
  - Eye swelling [Unknown]

NARRATIVE: CASE EVENT DATE: 20160826
